FAERS Safety Report 14883087 (Version 1)
Quarter: 2018Q2

REPORT INFORMATION
  Report Type: Spontaneous
  Country: FR (occurrence: FR)
  Receive Date: 20180511
  Receipt Date: 20180511
  Transmission Date: 20180711
  Serious: Yes (Other)
  Sender: FDA-Public Use
  Company Number: FR-FRESENIUS KABI-FK201805633

PATIENT
  Age: 55 Year
  Sex: Male

DRUGS (1)
  1. PROPOFOL (MANUFACTURER UNKNOWN) [Suspect]
     Active Substance: PROPOFOL
     Indication: ANAESTHESIA
     Route: 065

REACTIONS (6)
  - Haematoma [Unknown]
  - Burning sensation [Unknown]
  - Compartment syndrome [Unknown]
  - Agitation [Unknown]
  - Median nerve injury [Unknown]
  - Pain in extremity [Unknown]
